FAERS Safety Report 25072381 (Version 1)
Quarter: 2025Q1

REPORT INFORMATION
  Report Type: Spontaneous
  Country: IR (occurrence: IR)
  Receive Date: 20250313
  Receipt Date: 20250313
  Transmission Date: 20250408
  Serious: Yes (Hospitalization)
  Sender: ROCHE
  Company Number: IR-ROCHE-10000227433

PATIENT
  Age: 37 Year
  Sex: Female

DRUGS (5)
  1. MYCOPHENOLATE MOFETIL [Suspect]
     Active Substance: MYCOPHENOLATE MOFETIL
     Indication: Systemic lupus erythematosus
     Route: 065
  2. PREDNISOLONE [Suspect]
     Active Substance: PREDNISOLONE
     Indication: Systemic lupus erythematosus
     Route: 065
  3. HYDROXYCHLOROQUINE [Concomitant]
     Active Substance: HYDROXYCHLOROQUINE
  4. ACETAMINOPHEN [Concomitant]
     Active Substance: ACETAMINOPHEN
  5. NAPROXEN [Concomitant]
     Active Substance: NAPROXEN

REACTIONS (6)
  - Escherichia infection [Unknown]
  - Necrotising fasciitis [Unknown]
  - Erythema [Unknown]
  - C-reactive protein increased [Unknown]
  - Osteomyelitis [Not Recovered/Not Resolved]
  - Osteonecrosis [Unknown]
